FAERS Safety Report 16843740 (Version 1)
Quarter: 2019Q3

REPORT INFORMATION
  Report Type: Spontaneous
  Country: US (occurrence: US)
  Receive Date: 20190924
  Receipt Date: 20190924
  Transmission Date: 20191005
  Serious: Yes (Hospitalization)
  Sender: FDA-Public Use
  Company Number: US-TEVA-2019-US-1112122

PATIENT
  Age: 64 Year
  Sex: Female

DRUGS (1)
  1. RISEDRONIC-ACID [Suspect]
     Active Substance: RISEDRONIC ACID
     Indication: OSTEOPOROSIS
     Route: 065

REACTIONS (7)
  - Episcleral hyperaemia [Recovering/Resolving]
  - Conjunctivitis [Recovering/Resolving]
  - Erythema [Recovering/Resolving]
  - Eye movement disorder [Recovering/Resolving]
  - Periorbital oedema [Recovering/Resolving]
  - Conjunctival oedema [Recovering/Resolving]
  - Eye pain [Recovering/Resolving]
